FAERS Safety Report 20861822 (Version 1)
Quarter: 2022Q2

REPORT INFORMATION
  Report Type: Spontaneous
  Country: US (occurrence: None)
  Receive Date: 20220520
  Receipt Date: 20220520
  Transmission Date: 20220721
  Serious: No
  Sender: FDA-Public Use
  Company Number: None

PATIENT
  Age: 74 Year
  Sex: Female
  Weight: 56.25 kg

DRUGS (1)
  1. CIPROFLOXACIN HYDROCHLORIDE [Suspect]
     Active Substance: CIPROFLOXACIN HYDROCHLORIDE
     Indication: Multiple allergies
     Dosage: OTHER QUANTITY : 2 DROP(S);?FREQUENCY : TWICE A DAY;?
     Route: 047
     Dates: start: 20220517, end: 20220520

REACTIONS (2)
  - Eye irritation [None]
  - Instillation site pain [None]

NARRATIVE: CASE EVENT DATE: 20220520
